FAERS Safety Report 4601436-6 (Version None)
Quarter: 2005Q1

REPORT INFORMATION
  Report Type: 
  Country: None (occurrence: None)
  Receive Date: 20050308
  Receipt Date: 20050225
  Transmission Date: 20050727
  Serious: Yes (Other)
  Sender: FDA-Public Use
  Company Number: US-GLAXOSMITHKLINE-A0547325A

PATIENT
  Age: 69 Year
  Sex: Female
  Weight: 78.2 kg

DRUGS (1)
  1. NICORETTE [Suspect]
     Route: 002
     Dates: start: 19980101

REACTIONS (2)
  - DEPENDENCE [None]
  - DRUG ABUSER [None]
